FAERS Safety Report 7249446-7 (Version None)
Quarter: 2011Q1

REPORT INFORMATION
  Report Type: 
  Country: None (occurrence: None)
  Receive Date: 20110119
  Receipt Date: 20110106
  Transmission Date: 20110831
  Serious: Yes (Death, Hospitalization)
  Sender: FDA-Public Use
  Company Number: 2011DZ0009

PATIENT

DRUGS (1)
  1. ORFADIN [Suspect]

REACTIONS (1)
  - NOSOCOMIAL INFECTION [None]
